FAERS Safety Report 9636986 (Version 3)
Quarter: 2014Q2

REPORT INFORMATION
  Report Type: Spontaneous
  Country: MY (occurrence: MY)
  Receive Date: 20131022
  Receipt Date: 20140415
  Transmission Date: 20141212
  Serious: Yes (Hospitalization, Other)
  Sender: FDA-Public Use
  Company Number: MY-009507513-1310MYS003429

PATIENT
  Age: 77 Year
  Sex: Female

DRUGS (1)
  1. FOSAMAX PLUS [Suspect]
     Indication: OSTEOPOROSIS
     Dosage: 70 MG, ONCE A WEEK
     Route: 048
     Dates: start: 2004, end: 2013

REACTIONS (4)
  - Atypical femur fracture [Recovering/Resolving]
  - Surgery [Recovering/Resolving]
  - Pain in extremity [Unknown]
  - Bone formation increased [Unknown]
